FAERS Safety Report 5891051-9 (Version None)
Quarter: 2008Q3

REPORT INFORMATION
  Report Type: 
  Country: None (occurrence: None)
  Receive Date: 20080922
  Receipt Date: 20080911
  Transmission Date: 20090109
  Serious: Yes (Other)
  Sender: FDA-Public Use
  Company Number: IT-JNJFOC-20080803297

PATIENT
  Age: 62 Year
  Sex: Male

DRUGS (6)
  1. REMICADE [Suspect]
     Indication: RHEUMATOID ARTHRITIS
     Route: 042
  2. METHOTREXATE [Suspect]
     Indication: RHEUMATOID ARTHRITIS
  3. FOLINE [Concomitant]
     Dosage: FOR 2 YEARS
     Route: 048
  4. TRAMADOL HCL [Concomitant]
     Dosage: DOSE 20 DROPS
     Route: 048
  5. DELTACORTENE [Concomitant]
     Dosage: FOR 4 YEARS
     Route: 048
  6. INDAPAMIDE [Concomitant]
     Dosage: FOR 2 YEARS
     Route: 048

REACTIONS (1)
  - B-CELL LYMPHOMA [None]
